FAERS Safety Report 5079414-5 (Version None)
Quarter: 2006Q3

REPORT INFORMATION
  Report Type: 
  Country: None (occurrence: None)
  Receive Date: 20060814
  Receipt Date: 20060506
  Transmission Date: 20061208
  Serious: Yes (Other)
  Sender: FDA-Public Use
  Company Number: GB-ROCHE-447298

PATIENT
  Age: 52 Year
  Sex: Female
  Weight: 97.5 kg

DRUGS (9)
  1. XENICAL [Suspect]
     Indication: OBESITY
     Route: 048
     Dates: start: 20060515
  2. INSULIN [Concomitant]
  3. ASPIRIN [Concomitant]
     Route: 048
  4. ATORVASTATIN CALCIUM [Concomitant]
     Route: 048
  5. COAPROVEL [Concomitant]
     Route: 048
  6. ACIPIMOX [Concomitant]
  7. FERROUS SULFATE TAB [Concomitant]
  8. EZETIMIBE [Concomitant]
  9. DOMPERIDONE [Concomitant]

REACTIONS (1)
  - HYPOGLYCAEMIA [None]
